FAERS Safety Report 6551538-2 (Version None)
Quarter: 2010Q1

REPORT INFORMATION
  Report Type: 
  Country: None (occurrence: None)
  Receive Date: 20100126
  Receipt Date: 20100120
  Transmission Date: 20100710
  Serious: Yes (Death, Hospitalization, Other)
  Sender: FDA-Public Use
  Company Number: PHEH2008US04349

PATIENT
  Sex: Male

DRUGS (15)
  1. ZELNORM [Suspect]
     Dosage: 6 MG, BID
     Route: 048
     Dates: start: 20050302
  2. ALBUTEROL [Concomitant]
  3. PULMICORT [Concomitant]
  4. KLONOPIN [Concomitant]
  5. CLARITIN [Concomitant]
  6. ZOCOR [Concomitant]
  7. ELAVIL [Concomitant]
  8. XOPENEX [Concomitant]
  9. PREDNISONE [Concomitant]
  10. CLONIDINE [Concomitant]
  11. LISINOPRIL [Concomitant]
  12. MIRALAX [Concomitant]
  13. OXYCONTIN [Concomitant]
  14. OXYCODONE HCL [Concomitant]
  15. AMBIEN [Concomitant]

REACTIONS (20)
  - ABDOMINAL PAIN [None]
  - ANHEDONIA [None]
  - ANXIETY [None]
  - BACK PAIN [None]
  - CONSTIPATION [None]
  - DEATH [None]
  - DECREASED APPETITE [None]
  - DIARRHOEA [None]
  - DYSPNOEA [None]
  - FALL [None]
  - FATIGUE [None]
  - GASTROENTERITIS [None]
  - HEADACHE [None]
  - HERPES SIMPLEX [None]
  - ILEUS [None]
  - INJURY [None]
  - MIGRAINE [None]
  - PAIN [None]
  - SINUSITIS [None]
  - SPINAL OSTEOARTHRITIS [None]
